FAERS Safety Report 14199235 (Version 1)
Quarter: 2017Q4

REPORT INFORMATION
  Report Type: Spontaneous
  Country: US (occurrence: US)
  Receive Date: 20171117
  Receipt Date: 20171117
  Transmission Date: 20180321
  Serious: No
  Sender: FDA-Public Use
  Company Number: US-ELI_LILLY_AND_COMPANY-US201710009889

PATIENT
  Age: 68 Year
  Sex: Male

DRUGS (21)
  1. RISPERDAL [Concomitant]
     Active Substance: RISPERIDONE
  2. HALDOL [Concomitant]
     Active Substance: HALOPERIDOL
  3. BENZTROPINE [Concomitant]
     Active Substance: BENZTROPINE
  4. EMEDRIN [Concomitant]
  5. DIMETANE                           /00098602/ [Concomitant]
  6. NAVANE [Concomitant]
     Active Substance: THIOTHIXENE
  7. TRIHEXYPHENIDYL [Concomitant]
     Active Substance: TRIHEXYPHENIDYL
  8. LORAZEPAM. [Concomitant]
     Active Substance: LORAZEPAM
  9. BENADRYL [Concomitant]
     Active Substance: DIPHENHYDRAMINE HYDROCHLORIDE
  10. MELLARIL [Concomitant]
     Active Substance: THIORIDAZINE HYDROCHLORIDE
  11. LOXITANE                           /00401802/ [Concomitant]
  12. THORAZINE [Concomitant]
     Active Substance: CHLORPROMAZINE
  13. STELAZINE [Concomitant]
     Active Substance: TRIFLUOPERAZINE HYDROCHLORIDE
  14. AKINETON [Concomitant]
     Active Substance: BIPERIDEN HYDROCHLORIDE
  15. LITHIUM CARBONATE. [Concomitant]
     Active Substance: LITHIUM CARBONATE
  16. VALIUM [Concomitant]
     Active Substance: DIAZEPAM
  17. DALMANE [Concomitant]
     Active Substance: FLURAZEPAM HYDROCHLORIDE
  18. ZYPREXA [Suspect]
     Active Substance: OLANZAPINE
     Indication: PRODUCT USED FOR UNKNOWN INDICATION
     Dosage: UNK, UNKNOWN
     Route: 065
  19. PERPHENAZINE. [Concomitant]
     Active Substance: PERPHENAZINE
  20. CHLORTRIMETON [Concomitant]
     Active Substance: CHLORPHENIRAMINE MALEATE
  21. ZYRTEC [Concomitant]
     Active Substance: CETIRIZINE HYDROCHLORIDE

REACTIONS (9)
  - Nasopharyngitis [Unknown]
  - Fatigue [Unknown]
  - Pruritus [Unknown]
  - Pain in extremity [Unknown]
  - Depression [Unknown]
  - Tremor [Unknown]
  - Mental fatigue [Unknown]
  - Abdominal pain upper [Unknown]
  - Chest pain [Unknown]

NARRATIVE: CASE EVENT DATE: 20171007
